FAERS Safety Report 8212172-1 (Version None)
Quarter: 2012Q1

REPORT INFORMATION
  Report Type: 
  Country: None (occurrence: None)
  Receive Date: 20120315
  Receipt Date: 20120309
  Transmission Date: 20120608
  Serious: Yes (Hospitalization)
  Sender: FDA-Public Use
  Company Number: FR-ROCHE-1034812

PATIENT
  Sex: Female
  Weight: 66 kg

DRUGS (8)
  1. COPEGUS [Suspect]
     Route: 048
     Dates: start: 20120202
  2. ACETAMINOPHEN [Concomitant]
     Indication: INFLUENZA
     Dosage: AS REQUIRED
     Dates: start: 20120105
  3. PEGINTERFERON ALFA-2A [Suspect]
     Route: 058
     Dates: start: 20120209
  4. BI 201335 (HCV PROTEASE INHIBITOR) [Suspect]
     Route: 048
     Dates: start: 20120203
  5. PEGINTERFERON ALFA-2A [Suspect]
     Indication: HEPATITIS C
     Route: 058
     Dates: start: 20120105
  6. BI 201335 (HCV PROTEASE INHIBITOR) [Suspect]
     Indication: HEPATITIS C
     Route: 048
     Dates: start: 20120105
  7. PEGINTERFERON ALFA-2A [Suspect]
     Route: 058
     Dates: start: 20120206
  8. COPEGUS [Suspect]
     Indication: HEPATITIS C
     Route: 048
     Dates: start: 20120105

REACTIONS (2)
  - SYNCOPE [None]
  - GASTROENTERITIS [None]
